FAERS Safety Report 10530038 (Version 1)
Quarter: 2014Q4

REPORT INFORMATION
  Report Type: Spontaneous
  Country: JP (occurrence: None)
  Receive Date: 20141017
  Receipt Date: 20141017
  Transmission Date: 20150528
  Serious: No
  Sender: FDA-Public Use
  Company Number: A201411053

PATIENT
  Age: 22 Year
  Sex: Male

DRUGS (1)
  1. PAXIL CR [Suspect]
     Active Substance: PAROXETINE HYDROCHLORIDE
     Route: 048
     Dates: start: 201409

REACTIONS (3)
  - Constipation [None]
  - Melaena [None]
  - Faeces discoloured [None]

NARRATIVE: CASE EVENT DATE: 201409
